FAERS Safety Report 8395085-4 (Version None)
Quarter: 2012Q2

REPORT INFORMATION
  Report Type: 
  Country: None (occurrence: None)
  Receive Date: 20120524
  Receipt Date: 20120514
  Transmission Date: 20120825
  Serious: Yes (Hospitalization, Other)
  Sender: FDA-Public Use
  Company Number: AUR-APL-2012-02275

PATIENT
  Age: 79 Year
  Sex: Male

DRUGS (17)
  1. AMLODIPINE [Suspect]
     Indication: PRODUCT USED FOR UNKNOWN INDICATION
     Dosage: 10 MG
  2. DOXAZOSIN MESYLATE [Suspect]
     Indication: PRODUCT USED FOR UNKNOWN INDICATION
     Dosage: 8 MG
  3. LISINOPRIL [Concomitant]
  4. FERROUS SULFATE TAB [Concomitant]
  5. TRAVOPROST (TRAVOPROST) [Concomitant]
  6. FINASTERIDE [Suspect]
     Indication: PRODUCT USED FOR UNKNOWN INDICATION
     Dosage: 5 MG
  7. LEVOTHYROXINE SODIUM [Concomitant]
  8. SODIUM POLYSTYRENE SULFONATE (SODIUM POLYSTYRENE SULFONATE) [Concomitant]
  9. ERGOCALCIFEROL [Concomitant]
  10. SIMVASTATIN [Suspect]
     Indication: PRODUCT USED FOR UNKNOWN INDICATION
     Dosage: 20 MG, 40 MG
  11. INSULIN GLARGINE (INSULIN GLARGINE) [Concomitant]
  12. METOPROLOL TARTRATE [Concomitant]
  13. FUROSEMIDE [Concomitant]
  14. LACTULOSE [Concomitant]
  15. ASPIRIN [Concomitant]
  16. GEMFIBROZIL [Suspect]
     Indication: PRODUCT USED FOR UNKNOWN INDICATION
     Dosage: 1200 MG (600 MG, 2 IN 1 D)
  17. HYDRALAZINE HCL [Concomitant]

REACTIONS (12)
  - TEARFULNESS [None]
  - PAIN [None]
  - ANXIETY [None]
  - BLOOD PRESSURE INCREASED [None]
  - TRICUSPID VALVE INCOMPETENCE [None]
  - ILEUS [None]
  - RHABDOMYOLYSIS [None]
  - ANTINUCLEAR ANTIBODY POSITIVE [None]
  - PARAESTHESIA [None]
  - MYOPATHY [None]
  - GAIT DISTURBANCE [None]
  - MITRAL VALVE INCOMPETENCE [None]
